FAERS Safety Report 17817540 (Version 2)
Quarter: 2020Q2

REPORT INFORMATION
  Report Type: Report from Study
  Country: MX (occurrence: MX)
  Receive Date: 20200522
  Receipt Date: 20200529
  Transmission Date: 20200714
  Serious: Yes (Death, Other)
  Sender: FDA-Public Use
  Company Number: NVSC2020MX089241

PATIENT
  Age: 69 Year
  Sex: Female
  Weight: 58 kg

DRUGS (6)
  1. ENTRESTO [Suspect]
     Active Substance: SACUBITRIL\VALSARTAN
     Dosage: 0.5 MG, BID
     Route: 048
     Dates: end: 202002
  2. ACENOCOUMAROL [Suspect]
     Active Substance: ACENOCOUMAROL
     Indication: COAGULOPATHY
     Dosage: 0.5 DF, QD (4 MG) (5 YEARS AGO)
     Route: 048
     Dates: end: 20200413
  3. LASIX [Concomitant]
     Active Substance: FUROSEMIDE
     Indication: SWELLING
     Dosage: 3 DF, QD (5 YEARS AGO)
     Route: 048
     Dates: end: 20200413
  4. QUETIAPINE. [Concomitant]
     Active Substance: QUETIAPINE
     Indication: INSOMNIA
     Dosage: 25 MG, QD (AT NIGHT)
     Route: 065
     Dates: start: 202003, end: 20200413
  5. ENTRESTO [Suspect]
     Active Substance: SACUBITRIL\VALSARTAN
     Indication: CARDIAC FAILURE
     Dosage: 1 DF, BID
     Route: 048
     Dates: start: 201912
  6. ENTRESTO [Suspect]
     Active Substance: SACUBITRIL\VALSARTAN
     Dosage: 0.5 DF, QD (50 MG WITH THE DINNER)
     Route: 048
     Dates: start: 202002, end: 20200413

REACTIONS (14)
  - Chronic kidney disease [Fatal]
  - Cardiac failure [Fatal]
  - Anxiety [Fatal]
  - Arrhythmia [Fatal]
  - Cardiogenic shock [Fatal]
  - Heart rate increased [Unknown]
  - Pruritus [Fatal]
  - Condition aggravated [Fatal]
  - Feeling abnormal [Unknown]
  - Rheumatic heart disease [Fatal]
  - Tachycardia [Fatal]
  - Fluid retention [Fatal]
  - Wrong technique in product usage process [Unknown]
  - Product prescribing error [Unknown]

NARRATIVE: CASE EVENT DATE: 201912
